FAERS Safety Report 7938172-4 (Version None)
Quarter: 2011Q4

REPORT INFORMATION
  Report Type: 
  Country: None (occurrence: None)
  Receive Date: 20111123
  Receipt Date: 20111010
  Transmission Date: 20120403
  Serious: No
  Sender: FDA-Public Use
  Company Number: US-BRISTOL-MYERS SQUIBB COMPANY-16146250

PATIENT

DRUGS (2)
  1. ONGLYZA [Suspect]
  2. JANUVIA [Concomitant]

REACTIONS (3)
  - ABDOMINAL DISTENSION [None]
  - FLATULENCE [None]
  - ERUCTATION [None]
